FAERS Safety Report 23079684 (Version 1)
Quarter: 2023Q4

REPORT INFORMATION
  Report Type: Spontaneous
  Country: FI (occurrence: None)
  Receive Date: 20231018
  Receipt Date: 20231018
  Transmission Date: 20240110
  Serious: Yes (Hospitalization, Other)
  Sender: FDA-Public Use
  Company Number: 2023A183378

PATIENT
  Age: 370 Month
  Sex: Female
  Weight: 102 kg

DRUGS (7)
  1. DAPAGLIFLOZIN [Suspect]
     Active Substance: DAPAGLIFLOZIN
     Indication: Type 1 diabetes mellitus
     Dosage: 1 DF
     Route: 048
     Dates: start: 2020, end: 20230620
  2. APIDTRA INSULIN [Concomitant]
     Indication: Type 1 diabetes mellitus
  3. IDRAPRIL [Concomitant]
     Active Substance: IDRAPRIL
  4. ASPIRIN [Concomitant]
     Active Substance: ASPIRIN
     Indication: Hypertension
  5. ROSUVASTATIN [Concomitant]
     Active Substance: ROSUVASTATIN
  6. EZETIMIBE [Concomitant]
     Active Substance: EZETIMIBE
  7. BISOPROLOR [Concomitant]

REACTIONS (2)
  - Ketoacidosis [Recovered/Resolved]
  - Exposure during pregnancy [Not Recovered/Not Resolved]

NARRATIVE: CASE EVENT DATE: 20230501
